FAERS Safety Report 8524600 (Version 6)
Quarter: 2013Q1

REPORT INFORMATION
  Report Type: Spontaneous
  Country: BR (occurrence: BR)
  Receive Date: 20120420
  Receipt Date: 20130114
  Transmission Date: 20140127
  Serious: Yes (Other)
  Sender: FDA-Public Use
  Company Number: PHHY2011BR82861

PATIENT
  Age: 59 Year
  Sex: Female
  Weight: 86 kg

DRUGS (14)
  1. SANDOSTATIN LAR [Suspect]
     Indication: ACROMEGALY
     Dosage: 20 MG, UNK
     Route: 030
     Dates: start: 201107, end: 201110
  2. SANDOSTATIN LAR [Suspect]
     Dosage: 30 MG, UNK
     Route: 030
     Dates: start: 201111
  3. SANDOSTATIN LAR [Suspect]
     Dosage: 30 MG, UNK
     Route: 030
     Dates: start: 201107
  4. GLIFAGE [Concomitant]
     Indication: DIABETES MELLITUS
  5. LOSARTAN [Concomitant]
  6. DIURETICS [Concomitant]
  7. NATRILIX [Concomitant]
  8. SERTRALINE [Concomitant]
     Dosage: UNK UKN, UNK
  9. CARBAMAZEPINE [Concomitant]
     Dosage: UNK UKN, UNK
  10. SYNTHROID [Concomitant]
     Indication: THYROID CANCER
     Dosage: 125 UG, QD
  11. OMEPRAZOLE [Concomitant]
     Indication: ABDOMINAL DISCOMFORT
     Dosage: 20 MG, QD
  12. TEGRETOL [Concomitant]
     Indication: CONVULSION
  13. VITAMIN D [Concomitant]
     Dosage: 10000 UL, BIW
  14. LOSARTAN ORIFARM [Concomitant]
     Indication: BLOOD PRESSURE
     Dosage: 25 MG, QD

REACTIONS (43)
  - Mitral valve incompetence [Recovering/Resolving]
  - Electrocardiogram repolarisation abnormality [Unknown]
  - Hyperpyrexia [Recovering/Resolving]
  - Blood pressure increased [Recovering/Resolving]
  - Blood growth hormone increased [Recovering/Resolving]
  - Pain in extremity [Recovering/Resolving]
  - Trigger finger [Recovering/Resolving]
  - Foot deformity [Recovering/Resolving]
  - Tumour pain [Recovering/Resolving]
  - Inflammation [Recovering/Resolving]
  - Pain [Recovering/Resolving]
  - Dysentery [Recovering/Resolving]
  - Dizziness [Recovering/Resolving]
  - Fatigue [Unknown]
  - Weight decreased [Recovering/Resolving]
  - Back pain [Recovering/Resolving]
  - Spinal pain [Not Recovered/Not Resolved]
  - Chest pain [Recovering/Resolving]
  - Emotional disorder [Unknown]
  - Somnolence [Recovering/Resolving]
  - Sciatic nerve neuropathy [Recovering/Resolving]
  - Nervousness [Recovering/Resolving]
  - Gait disturbance [Recovering/Resolving]
  - Colitis [Recovering/Resolving]
  - Weight increased [Recovering/Resolving]
  - Retching [Recovering/Resolving]
  - Abasia [Recovering/Resolving]
  - Movement disorder [Recovering/Resolving]
  - Blood pressure decreased [Recovering/Resolving]
  - Malaise [Recovering/Resolving]
  - Pyrexia [Recovering/Resolving]
  - Feeling hot [Recovering/Resolving]
  - Influenza [Recovering/Resolving]
  - Therapeutic response delayed [Recovering/Resolving]
  - Abdominal pain [Recovering/Resolving]
  - Injection site pain [Recovering/Resolving]
  - Abdominal distension [Recovering/Resolving]
  - Headache [Recovering/Resolving]
  - Nausea [Recovering/Resolving]
  - Drug ineffective [Recovering/Resolving]
  - Asthenia [Recovering/Resolving]
  - Flatulence [Recovering/Resolving]
  - Cholelithiasis [Recovering/Resolving]
